FAERS Safety Report 8516094-8 (Version None)
Quarter: 2012Q3

REPORT INFORMATION
  Report Type: 
  Country: None (occurrence: None)
  Receive Date: 20120717
  Receipt Date: 20120712
  Transmission Date: 20120928
  Serious: Yes (Hospitalization)
  Sender: FDA-Public Use
  Company Number: US-ROXANE LABORATORIES, INC.-2012-RO-01545RO

PATIENT
  Age: 64 Year
  Sex: Male
  Weight: 106 kg

DRUGS (2)
  1. ZOMETA [Concomitant]
     Dates: start: 20120323
  2. PREDNISONE [Suspect]
     Indication: MULTIPLE MYELOMA
     Dosage: 120 MG
     Dates: start: 20120511, end: 20120515

REACTIONS (3)
  - GASTRITIS [None]
  - HYPERGLYCAEMIA [None]
  - ABDOMINAL PAIN [None]
